FAERS Safety Report 24332973 (Version 1)
Quarter: 2024Q3

REPORT INFORMATION
  Report Type: Spontaneous
  Country: US (occurrence: None)
  Receive Date: 20240917
  Receipt Date: 20240917
  Transmission Date: 20241017
  Serious: No
  Sender: Public
  Company Number: None

PATIENT
  Age: 58 Year
  Sex: Male
  Weight: 123.75 kg

DRUGS (18)
  1. MOUNJARO [Suspect]
     Active Substance: TIRZEPATIDE
     Indication: Type 2 diabetes mellitus
     Dates: start: 20240908
  2. MOUNJARO [Suspect]
     Active Substance: TIRZEPATIDE
     Indication: Obesity
  3. NOVOLOG [Concomitant]
     Active Substance: INSULIN ASPART
  4. TOUJEO MAX [Concomitant]
     Active Substance: INSULIN GLARGINE
  5. METFORMIN HYDROCHLORIDE [Concomitant]
     Active Substance: METFORMIN HYDROCHLORIDE
  6. CITALOPRAM [Concomitant]
     Active Substance: CITALOPRAM
  7. ATORVASTATIN [Concomitant]
     Active Substance: ATORVASTATIN
  8. LOSARTAN AND HYDROCHLOROTHIAZIDE [Concomitant]
     Active Substance: HYDROCHLOROTHIAZIDE\LOSARTAN POTASSIUM
  9. ASPIRIN [Concomitant]
     Active Substance: ASPIRIN
  10. BIMATOPROST EYEDROPS [Concomitant]
  11. COLESEVELAM [Concomitant]
     Active Substance: COLESEVELAM
  12. VITAMIN C [Concomitant]
     Active Substance: ASCORBIC ACID
  13. VITAMIN D3 [Concomitant]
     Active Substance: CHOLECALCIFEROL
  14. CALCIUM + ZINC +D3 [Concomitant]
  15. MINERALS\VITAMINS [Concomitant]
     Active Substance: MINERALS\VITAMINS
  16. MAGNESIUM [Concomitant]
     Active Substance: MAGNESIUM
  17. TUMS [Concomitant]
     Active Substance: CALCIUM CARBONATE
  18. FAMOTIDINE [Concomitant]
     Active Substance: FAMOTIDINE

REACTIONS (4)
  - Injection site pruritus [None]
  - Injection site erythema [None]
  - Injection site rash [None]
  - Hypersensitivity [None]

NARRATIVE: CASE EVENT DATE: 20240916
